FAERS Safety Report 12882714 (Version 2)
Quarter: 2016Q4

REPORT INFORMATION
  Report Type: Spontaneous
  Country: IN (occurrence: IN)
  Receive Date: 20161025
  Receipt Date: 20161025
  Transmission Date: 20170207
  Serious: Yes (Hospitalization)
  Sender: FDA-Public Use
  Company Number: IN-NORTHSTAR HEALTHCARE HOLDINGS-IN-2016NSR001858

PATIENT
  Age: 58 Year
  Sex: Male

DRUGS (2)
  1. PANTOPRAZOLE [Concomitant]
     Active Substance: PANTOPRAZOLE SODIUM
     Indication: HICCUPS
     Dosage: 40 MG, QD
  2. BACLOFEN. [Suspect]
     Active Substance: BACLOFEN
     Indication: HICCUPS
     Dosage: 10 MG, BID

REACTIONS (4)
  - Toxic encephalopathy [Recovered/Resolved]
  - Hyporeflexia [Recovered/Resolved]
  - Somnolence [Recovered/Resolved]
  - Loss of consciousness [Recovered/Resolved]
